FAERS Safety Report 25156365 (Version 1)
Quarter: 2025Q2

REPORT INFORMATION
  Report Type: Spontaneous
  Country: US (occurrence: None)
  Receive Date: 20250403
  Receipt Date: 20250403
  Transmission Date: 20250717
  Serious: Yes (Hospitalization)
  Sender: FDA-CTU
  Company Number: None

PATIENT
  Age: 79 Year
  Sex: Male

DRUGS (15)
  1. REPATHA [Suspect]
     Active Substance: EVOLOCUMAB
     Indication: Hyperlipidaemia
     Route: 058
     Dates: start: 20230801
  2. REPATHA [Suspect]
     Active Substance: EVOLOCUMAB
     Indication: Arteriosclerosis
  3. ALLOPURINOL [Concomitant]
     Active Substance: ALLOPURINOL
  4. GLIMEPIRIDE [Concomitant]
     Active Substance: GLIMEPIRIDE
  5. TRAZODONE [Concomitant]
     Active Substance: TRAZODONE HYDROCHLORIDE
  6. VITAMIN D2 [Concomitant]
     Active Substance: ERGOCALCIFEROL
  7. SOTALOL [Concomitant]
     Active Substance: SOTALOL
  8. XARELTO [Concomitant]
     Active Substance: RIVAROXABAN
  9. ASPIRIN [Concomitant]
     Active Substance: ASPIRIN
  10. AMLODIPINE [Concomitant]
     Active Substance: AMLODIPINE BESYLATE
  11. REFRESH TEARS [Concomitant]
     Active Substance: CARBOXYMETHYLCELLULOSE SODIUM
  12. VALSARTAN [Concomitant]
     Active Substance: VALSARTAN
  13. FUROSEMIDE [Concomitant]
     Active Substance: FUROSEMIDE
  14. VITAMINS [Concomitant]
     Active Substance: VITAMINS
  15. POTASSIUM [Concomitant]
     Active Substance: POTASSIUM

REACTIONS (6)
  - Nonspecific reaction [None]
  - Atrial fibrillation [None]
  - Deep vein thrombosis [None]
  - Pulmonary embolism [None]
  - Cardiac failure congestive [None]
  - Renal disorder [None]

NARRATIVE: CASE EVENT DATE: 20250220
